FAERS Safety Report 24862165 (Version 1)
Quarter: 2025Q1

REPORT INFORMATION
  Report Type: Other
  Country: CA (occurrence: CA)
  Receive Date: 20250120
  Receipt Date: 20250120
  Transmission Date: 20250408
  Serious: Yes (Death, Other)
  Sender: APOTEX
  Company Number: CA-APOTEX-2025AP001068

PATIENT
  Sex: Female

DRUGS (1)
  1. LENALIDOMIDE [Suspect]
     Active Substance: LENALIDOMIDE
     Indication: Plasma cell myeloma
     Dosage: 15 MILLIGRAM, QD
     Route: 048
     Dates: start: 20211124

REACTIONS (3)
  - Adenocarcinoma of colon [Fatal]
  - Metastasis [Fatal]
  - Hepatic cancer [Fatal]
